FAERS Safety Report 20710396 (Version 1)
Quarter: 2022Q2

REPORT INFORMATION
  Report Type: Spontaneous
  Country: US (occurrence: US)
  Receive Date: 20220414
  Receipt Date: 20220414
  Transmission Date: 20220721
  Serious: No
  Sender: FDA-Public Use
  Company Number: US-PFIZER INC-2021854624

PATIENT
  Age: 94 Year
  Sex: Male
  Weight: 68.671 kg

DRUGS (1)
  1. MEDROL [Suspect]
     Active Substance: METHYLPREDNISOLONE
     Indication: Back pain
     Dosage: UNK

REACTIONS (3)
  - Insomnia [Unknown]
  - Pain [Unknown]
  - Off label use [Unknown]
